FAERS Safety Report 8777970 (Version 2)
Quarter: 2013Q2

REPORT INFORMATION
  Report Type: Spontaneous
  Country: US (occurrence: US)
  Receive Date: 20120912
  Receipt Date: 20130416
  Transmission Date: 20140414
  Serious: No
  Sender: FDA-Public Use
  Company Number: US-ASTRAZENECA-2012SE61157

PATIENT
  Age: 56 Year
  Sex: Female

DRUGS (1)
  1. TOPROL XL [Suspect]
     Indication: HYPERTENSION
     Route: 048

REACTIONS (1)
  - Diabetes mellitus [Unknown]
